FAERS Safety Report 24460162 (Version 1)
Quarter: 2024Q4

REPORT INFORMATION
  Report Type: Report from Study
  Country: US (occurrence: US)
  Receive Date: 20241018
  Receipt Date: 20241018
  Transmission Date: 20250115
  Serious: No
  Sender: ROCHE
  Company Number: US-ROCHE-3569898

PATIENT
  Age: 55 Year
  Sex: Female

DRUGS (1)
  1. RITUXAN [Suspect]
     Active Substance: RITUXIMAB
     Indication: Microscopic polyangiitis
     Dosage: END DATE: 10-JAN-2025?500 MG SINGLE-USE VIAL?INFUSE 1000 MG DAY1 OVER 4.25 HRS THEN 1000 MG OVER 3.2
     Route: 042
     Dates: start: 20240110

REACTIONS (2)
  - Off label use [Unknown]
  - No adverse event [Unknown]
